FAERS Safety Report 24257138 (Version 1)
Quarter: 2024Q3

REPORT INFORMATION
  Report Type: Spontaneous
  Country: SE (occurrence: SE)
  Receive Date: 20240828
  Receipt Date: 20240828
  Transmission Date: 20241016
  Serious: Yes (Other)
  Sender: RANBAXY
  Company Number: SE-SUN PHARMACEUTICAL INDUSTRIES LTD-2024RR-464301

PATIENT
  Sex: Male

DRUGS (1)
  1. OLANZAPINE [Suspect]
     Active Substance: OLANZAPINE
     Indication: Sleep disorder
     Dosage: TABLET
     Route: 065

REACTIONS (1)
  - Schizophrenia [Unknown]
